FAERS Safety Report 5075527-2 (Version None)
Quarter: 2006Q3

REPORT INFORMATION
  Report Type: 
  Country: None (occurrence: None)
  Receive Date: 20060804
  Receipt Date: 20060725
  Transmission Date: 20061208
  Serious: Yes (Disabling)
  Sender: FDA-Public Use
  Company Number: 2006092441

PATIENT
  Age: 1 Day
  Sex: Female

DRUGS (2)
  1. CYTOTEC [Suspect]
     Indication: ABORTION INDUCED
     Dosage: (200 MCG, ONE DOSE), ORAL
     Route: 048
  2. MIFEGYNE (MIFEPRISTONE) [Suspect]
     Indication: ABORTION INDUCED
     Dosage: (200 MG, ONE DOSE), ORAL
     Route: 048

REACTIONS (6)
  - DRUG EXPOSURE DURING PREGNANCY [None]
  - FACIAL PALSY [None]
  - HYPOTONIA NEONATAL [None]
  - MOEBIUS II SYNDROME [None]
  - PREMATURE BABY [None]
  - RETROGNATHIA [None]
